FAERS Safety Report 19271596 (Version 1)
Quarter: 2021Q2

REPORT INFORMATION
  Report Type: Spontaneous
  Country: RU (occurrence: RU)
  Receive Date: 20210518
  Receipt Date: 20210518
  Transmission Date: 20210717
  Serious: Yes (Hospitalization)
  Sender: FDA-Public Use
  Company Number: RU-BAYER-2021-142575

PATIENT
  Age: 57 Year
  Sex: Male

DRUGS (6)
  1. CIPROFLOXACIN. [Suspect]
     Active Substance: CIPROFLOXACIN
     Indication: COVID-19
     Dosage: UNK
     Dates: start: 202011
  2. FRAXIPARINE [Concomitant]
     Active Substance: NADROPARIN CALCIUM
  3. AVIFAVIR [Concomitant]
  4. CEFTRIAXONE. [Concomitant]
     Active Substance: CEFTRIAXONE
  5. DEXAMETHASONE. [Concomitant]
     Active Substance: DEXAMETHASONE
  6. METRONIDAZOLE. [Concomitant]
     Active Substance: METRONIDAZOLE

REACTIONS (3)
  - Drug effective for unapproved indication [None]
  - Mental impairment [None]
  - Off label use [None]

NARRATIVE: CASE EVENT DATE: 20201120
